FAERS Safety Report 8836099 (Version 2)
Quarter: 2021Q1

REPORT INFORMATION
  Report Type: Spontaneous
  Country: CA (occurrence: CA)
  Receive Date: 20121011
  Receipt Date: 20210129
  Transmission Date: 20210420
  Serious: Yes (Death, Other)
  Sender: FDA-Public Use
  Company Number: CA-NAPPMUNDI-DEU-2012-0009546

PATIENT

DRUGS (3)
  1. NON?PMN MORPHINE SULFATE [Suspect]
     Active Substance: MORPHINE SULFATE
     Indication: ANALGESIC THERAPY
     Dosage: 10 MG, SEE TEXT
     Route: 058
  2. NON?PMN MORPHINE SULFATE [Suspect]
     Active Substance: MORPHINE SULFATE
     Dosage: 1 MG, SEE TEXT
     Route: 058
  3. NON?PMN MORPHINE SULFATE [Suspect]
     Active Substance: MORPHINE SULFATE
     Dosage: 2 MG, SEE TEXT
     Route: 058

REACTIONS (2)
  - Incorrect dose administered [Fatal]
  - Cardiac failure congestive [Fatal]
